FAERS Safety Report 8186547-3 (Version None)
Quarter: 2012Q1

REPORT INFORMATION
  Report Type: 
  Country: None (occurrence: None)
  Receive Date: 20120302
  Receipt Date: 20120302
  Transmission Date: 20120608
  Serious: Yes (Disabling)
  Sender: FDA-Public Use
  Company Number: None

PATIENT
  Sex: Male
  Weight: 65.7716 kg

DRUGS (1)
  1. LATANOPROST [Suspect]
     Indication: GLAUCOMA
     Dosage: 1 DROP EACH 1 X EYE AT NIGHT
     Route: 031
     Dates: start: 20090101

REACTIONS (4)
  - PRODUCT CONTAINER ISSUE [None]
  - PRODUCT SUBSTITUTION ISSUE [None]
  - PRODUCT PACKAGING QUANTITY ISSUE [None]
  - PRODUCT FORMULATION ISSUE [None]
